FAERS Safety Report 6011955-6 (Version None)
Quarter: 2008Q4

REPORT INFORMATION
  Report Type: 
  Country: None (occurrence: None)
  Receive Date: 20081218
  Receipt Date: 20081013
  Transmission Date: 20090506
  Serious: No
  Sender: FDA-Public Use
  Company Number: US-ASTRAZENECA-2008UW22452

PATIENT
  Age: 78 Year
  Sex: Male

DRUGS (4)
  1. CRESTOR [Suspect]
     Indication: BLOOD CHOLESTEROL INCREASED
     Dosage: BREAK CRESTOR SAMPLES IN HALF AND TAKE HALF BEFORE BEDTIME
     Route: 048
  2. ATENOLOL [Concomitant]
  3. ASPIRIN [Concomitant]
  4. PROSTATE MEDICATION [Concomitant]

REACTIONS (2)
  - DRUG ADMINISTRATION ERROR [None]
  - SINUS CONGESTION [None]
